FAERS Safety Report 4452800-X (Version None)
Quarter: 2004Q3

REPORT INFORMATION
  Report Type: 
  Country: None (occurrence: None)
  Receive Date: 20040813
  Receipt Date: 20040511
  Transmission Date: 20050211
  Serious: No
  Sender: FDA-Public Use
  Company Number: S04-USA-02996-03

PATIENT
  Age: 85 Year
  Sex: Male
  Weight: 62.1428 kg

DRUGS (8)
  1. NAMENDA [Suspect]
     Indication: DEMENTIA ALZHEIMER'S TYPE
     Dosage: 5 MG QD PO
     Route: 048
     Dates: start: 20040503, end: 20040509
  2. NAMENDA [Suspect]
     Indication: DEMENTIA ALZHEIMER'S TYPE
     Dosage: 10 MG QD PO
     Route: 048
     Dates: start: 20040510, end: 20040521
  3. ARICEPT [Concomitant]
  4. SINEMET CR [Concomitant]
  5. LANOXIN [Concomitant]
  6. XALATAN [Concomitant]
  7. MULTI-VITAMIN [Concomitant]
  8. REQUIP [Concomitant]

REACTIONS (2)
  - DIZZINESS [None]
  - FALL [None]
